FAERS Safety Report 19211608 (Version 1)
Quarter: 2021Q2

REPORT INFORMATION
  Report Type: Spontaneous
  Country: US (occurrence: US)
  Receive Date: 20210504
  Receipt Date: 20210504
  Transmission Date: 20210717
  Serious: Yes (Other)
  Sender: FDA-Public Use
  Company Number: US-PURDUE-USA-2020-0219114

PATIENT
  Sex: Male

DRUGS (16)
  1. OXYCODONE HCL CR TABLETS (SIMILAR TO NDA 22?272) [Suspect]
     Active Substance: OXYCODONE HYDROCHLORIDE
     Indication: MUSCULAR DYSTROPHY
     Dosage: UNKNOWN
     Route: 048
     Dates: start: 1980
  2. OXYCODONE HCL TABLETS (RHODES 91?490) [Suspect]
     Active Substance: OXYCODONE HYDROCHLORIDE
     Indication: MUSCULAR DYSTROPHY
     Dosage: UNKNOWN
     Route: 048
     Dates: start: 1980
  3. HYDROCODONE BITARTRATE AND ACETAMINOPHEN [Suspect]
     Active Substance: ACETAMINOPHEN\HYDROCODONE BITARTRATE
     Indication: MUSCULAR DYSTROPHY
     Dosage: UNKNOWN
     Route: 048
     Dates: start: 1980
  4. MORPHINE SULFATE EXTENDED?RELEASE TABLETS (RHODES 74?769, 74?862) [Suspect]
     Active Substance: MORPHINE SULFATE
     Indication: MUSCULAR DYSTROPHY
     Dosage: UNKNOWN
     Route: 048
     Dates: start: 1980
  5. MORPHINE SULFATE (SIMILAR TO NDA 19?516) [Suspect]
     Active Substance: MORPHINE SULFATE
     Indication: MUSCULAR DYSTROPHY
     Dosage: UNKNOWN
     Route: 065
     Dates: start: 1980
  6. OXYCODONE HYDROCHLORIDE (SIMILAR TO NDA 22?272) [Suspect]
     Active Substance: OXYCODONE HYDROCHLORIDE
     Indication: MUSCULAR DYSTROPHY
     Dosage: UNKNOWN
     Route: 065
     Dates: start: 1980
  7. OXYCODONE HYDROCHLORIDE (SIMILAR TO NDA 22?272) [Suspect]
     Active Substance: OXYCODONE HYDROCHLORIDE
     Indication: PROSTATE CANCER
  8. DILAUDID [Suspect]
     Active Substance: HYDROMORPHONE HYDROCHLORIDE
     Indication: MUSCULAR DYSTROPHY
     Dosage: UNKNOWN
     Route: 048
     Dates: start: 1980
  9. DILAUDID [Suspect]
     Active Substance: HYDROMORPHONE HYDROCHLORIDE
     Indication: PROSTATE CANCER
  10. OXYCODONE HCL TABLETS (RHODES 91?490) [Suspect]
     Active Substance: OXYCODONE HYDROCHLORIDE
     Indication: PROSTATE CANCER
  11. HYDROCODONE BITARTRATE AND ACETAMINOPHEN [Suspect]
     Active Substance: ACETAMINOPHEN\HYDROCODONE BITARTRATE
     Indication: PROSTATE CANCER
  12. MORPHINE SULFATE EXTENDED?RELEASE TABLETS (RHODES 74?769, 74?862) [Suspect]
     Active Substance: MORPHINE SULFATE
     Indication: PROSTATE CANCER
  13. OXYCONTIN [Suspect]
     Active Substance: OXYCODONE HYDROCHLORIDE
     Indication: MUSCULAR DYSTROPHY
     Dosage: UNKNOWN
     Route: 048
     Dates: start: 1980
  14. OXYCONTIN [Suspect]
     Active Substance: OXYCODONE HYDROCHLORIDE
     Indication: PROSTATE CANCER
  15. OXYCODONE HCL CR TABLETS (SIMILAR TO NDA 22?272) [Suspect]
     Active Substance: OXYCODONE HYDROCHLORIDE
     Indication: PROSTATE CANCER
  16. MORPHINE SULFATE (SIMILAR TO NDA 19?516) [Suspect]
     Active Substance: MORPHINE SULFATE
     Indication: PROSTATE CANCER

REACTIONS (9)
  - Drug dependence [Unknown]
  - Withdrawal syndrome [Unknown]
  - Mental disorder [Unknown]
  - Somnolence [Unknown]
  - Skin disorder [Unknown]
  - Anxiety [Unknown]
  - Loss of consciousness [Unknown]
  - Bone pain [Unknown]
  - Pain [Unknown]
